FAERS Safety Report 15160751 (Version 2)
Quarter: 2018Q3

REPORT INFORMATION
  Report Type: Report from Study
  Country: MX (occurrence: MX)
  Receive Date: 20180718
  Receipt Date: 20180814
  Transmission Date: 20181010
  Serious: Yes (Other)
  Sender: FDA-Public Use
  Company Number: PHHY2018MX047584

PATIENT
  Age: 39 Year
  Sex: Male
  Weight: 50 kg

DRUGS (8)
  1. TRILEPTAL [Suspect]
     Active Substance: OXCARBAZEPINE
     Indication: INTELLECTUAL DISABILITY
  2. PAROXETINE. [Concomitant]
     Active Substance: PAROXETINE
     Indication: INTELLECTUAL DISABILITY
  3. PAXIL [Concomitant]
     Active Substance: PAROXETINE HYDROCHLORIDE
     Indication: RESTLESSNESS
     Dosage: 1 DF, QD
     Route: 048
     Dates: start: 201709
  4. PAXIL [Concomitant]
     Active Substance: PAROXETINE HYDROCHLORIDE
     Indication: INTELLECTUAL DISABILITY
  5. PAROXETINE. [Concomitant]
     Active Substance: PAROXETINE
     Indication: RESTLESSNESS
     Dosage: 1 DF, QD (10 YEARS AGO)
     Route: 048
     Dates: end: 201703
  6. OXCARBAZEPINE. [Suspect]
     Active Substance: OXCARBAZEPINE
     Indication: PRODUCT USED FOR UNKNOWN INDICATION
     Route: 065
  7. PASIL [Concomitant]
     Active Substance: PAZUFLOXACIN MESILATE
     Indication: PRODUCT USED FOR UNKNOWN INDICATION
     Dosage: 1 DF, QD
     Route: 048
  8. TRILEPTAL [Suspect]
     Active Substance: OXCARBAZEPINE
     Indication: RESTLESSNESS
     Dosage: 2 DF, QD
     Route: 048

REACTIONS (4)
  - Drug intolerance [Unknown]
  - Psychotic disorder [Recovered/Resolved]
  - Product use in unapproved indication [Unknown]
  - Insomnia [Recovered/Resolved]

NARRATIVE: CASE EVENT DATE: 201807
